FAERS Safety Report 8835382 (Version 2)
Quarter: 2012Q4

REPORT INFORMATION
  Report Type: Report from Study
  Country: AU (occurrence: AU)
  Receive Date: 20121011
  Receipt Date: 20121203
  Transmission Date: 20130627
  Serious: Yes (Death)
  Sender: FDA-Public Use
  Company Number: AU-ROCHE-1142135

PATIENT
  Age: 92 Year
  Sex: Male

DRUGS (14)
  1. METHOXY POLYETHYLENE GLYCOL-EPOETIN BETA [Suspect]
     Indication: NEPHROGENIC ANAEMIA
     Route: 058
     Dates: start: 20111214
  2. PARACETAMOL [Concomitant]
     Route: 065
  3. CLEXANE [Concomitant]
     Route: 065
  4. SENNA [Concomitant]
  5. NULACIN [Concomitant]
  6. PREDNISOLONE [Concomitant]
     Route: 065
  7. HEPARIN [Concomitant]
     Route: 065
  8. FRUSAMIDE [Concomitant]
     Route: 065
  9. NEXIUM [Concomitant]
     Route: 065
  10. PRAVASTATIN [Concomitant]
     Route: 065
  11. SERETIDE [Concomitant]
     Dosage: 50/500 mg bd
     Route: 065
  12. SPIRIVA [Concomitant]
     Route: 065
  13. ASPIRIN [Concomitant]
     Route: 065
  14. ALLOPURINOL [Concomitant]
     Route: 065

REACTIONS (7)
  - Blood pressure decreased [Fatal]
  - Renal failure acute [Fatal]
  - Myocardial ischaemia [Fatal]
  - Post procedural haemorrhage [Fatal]
  - Metabolic acidosis [Fatal]
  - Bladder cancer [Fatal]
  - Hyperkalaemia [Fatal]
